FAERS Safety Report 6745578-8 (Version None)
Quarter: 2010Q2

REPORT INFORMATION
  Report Type: 
  Country: None (occurrence: None)
  Receive Date: 20100528
  Receipt Date: 20100521
  Transmission Date: 20101027
  Serious: Yes (Hospitalization, Other)
  Sender: FDA-Public Use
  Company Number: IT-JNJFOC-20100500526

PATIENT
  Sex: Male

DRUGS (4)
  1. RISPERDAL [Suspect]
     Indication: SELF INJURIOUS BEHAVIOUR
     Route: 048
  2. RISPERDAL [Suspect]
     Route: 048
  3. RISPERDAL [Suspect]
     Indication: SCHIZOAFFECTIVE DISORDER
     Route: 048
  4. RISPERDAL [Suspect]
     Route: 048

REACTIONS (6)
  - ASTHENIA [None]
  - FEELING HOT [None]
  - INTENTIONAL OVERDOSE [None]
  - PALPITATIONS [None]
  - SELF INJURIOUS BEHAVIOUR [None]
  - TREATMENT NONCOMPLIANCE [None]
